FAERS Safety Report 25216574 (Version 1)
Quarter: 2025Q2

REPORT INFORMATION
  Report Type: Spontaneous
  Country: BR (occurrence: BR)
  Receive Date: 20250419
  Receipt Date: 20250419
  Transmission Date: 20250716
  Serious: Yes (Life-Threatening, Hospitalization)
  Sender: ACCORD
  Company Number: BR-Accord-479190

PATIENT
  Age: 9 Year
  Sex: Male
  Weight: 20 kg

DRUGS (3)
  1. METHOTREXATE [Suspect]
     Active Substance: METHOTREXATE
     Indication: Osteosarcoma
     Dosage: 12 MG/M2 (HD-MTX AT 12 MG/M2, ADMINISTERED OVER A 24-H CONTINUOUS INFUSION)
  2. WARFARIN [Concomitant]
     Active Substance: WARFARIN
  3. LEUCOVORIN [Concomitant]
     Active Substance: LEUCOVORIN\LEUCOVORIN CALCIUM

REACTIONS (5)
  - Acute kidney injury [Recovered/Resolved]
  - Mucosal inflammation [Unknown]
  - Febrile neutropenia [Unknown]
  - Confusional state [Unknown]
  - Toxicity to various agents [Unknown]
